FAERS Safety Report 18340515 (Version 1)
Quarter: 2020Q4

REPORT INFORMATION
  Report Type: Spontaneous
  Country: US (occurrence: US)
  Receive Date: 20201002
  Receipt Date: 20201002
  Transmission Date: 20210113
  Serious: Yes (Other)
  Sender: FDA-Public Use
  Company Number: US-PFIZER INC-2020379218

PATIENT

DRUGS (1)
  1. PREPARATION H SUPPOSITORY [Suspect]
     Active Substance: COCOA BUTTER\PHENYLEPHRINE HYDROCHLORIDE
     Dosage: UNK, 2X/DAY [USE THEM FOR MORNING AND NIGHT]

REACTIONS (1)
  - Haemorrhage [Not Recovered/Not Resolved]
